FAERS Safety Report 5693012-1 (Version None)
Quarter: 2008Q2

REPORT INFORMATION
  Report Type: 
  Country: None (occurrence: None)
  Receive Date: 20080402
  Receipt Date: 20080402
  Transmission Date: 20081010
  Serious: Yes (Hospitalization)
  Sender: FDA-Public Use
  Company Number: None

PATIENT
  Age: 76 Year
  Sex: Female
  Weight: 65.7716 kg

DRUGS (10)
  1. ALLOPURINOL [Suspect]
     Dosage: 300MG DAILY PO
     Route: 048
     Dates: start: 20060826
  2. AVAPRO [Concomitant]
  3. ASPIRIN [Concomitant]
  4. TRIAMTERENE AND HYDROCHLOROTHIAZIDE [Concomitant]
  5. PLAVIX [Concomitant]
  6. AMLODIPINE [Concomitant]
  7. METOPROLOL TARTRATE [Concomitant]
  8. GLIMEPIRIDE [Concomitant]
  9. CATAPRES [Concomitant]
  10. INSULIN [Concomitant]

REACTIONS (4)
  - ANAEMIA [None]
  - CHEST DISCOMFORT [None]
  - COUGH [None]
  - MUSCULOSKELETAL DISCOMFORT [None]
